FAERS Safety Report 23118350 (Version 1)
Quarter: 2023Q4

REPORT INFORMATION
  Report Type: Spontaneous
  Country: IT (occurrence: IT)
  Receive Date: 20231028
  Receipt Date: 20231028
  Transmission Date: 20240110
  Serious: Yes (Other)
  Sender: FDA-Public Use
  Company Number: IT-ABBVIE-5470953

PATIENT
  Age: 80 Year
  Sex: Male

DRUGS (3)
  1. SILODOSIN [Suspect]
     Active Substance: SILODOSIN
     Indication: Urinary hesitation
     Route: 065
     Dates: start: 202203
  2. ELIGARD [Concomitant]
     Active Substance: LEUPROLIDE ACETATE
     Indication: Hormone therapy
     Route: 058
  3. PIRENOXINE [Concomitant]
     Active Substance: PIRENOXINE
     Indication: Cataract

REACTIONS (1)
  - Urinary retention [Unknown]
